FAERS Safety Report 13665818 (Version 1)
Quarter: 2017Q2

REPORT INFORMATION
  Report Type: Spontaneous
  Country: NL (occurrence: NL)
  Receive Date: 20170619
  Receipt Date: 20170619
  Transmission Date: 20170830
  Serious: Yes (Disabling)
  Sender: FDA-Public Use
  Company Number: NL-TEVA-779705ACC

PATIENT
  Age: 49 Year
  Sex: Male

DRUGS (4)
  1. WATERSTOFPEROXIDE MONDSPOELING 10MG/ML [Concomitant]
     Dosage: ORDER TO RINSE
     Route: 003
  2. CHLOORHEXIDINE GEL DENTAAL 10MG/G [Concomitant]
     Route: 050
  3. AMOXICILLIN TABLET 500MG [Suspect]
     Active Substance: AMOXICILLIN
     Indication: PROPHYLAXIS
     Dosage: 1500 MILLIGRAM DAILY;
     Route: 048
     Dates: start: 20170201
  4. CHLOORHEXIDINE MONDSPOELING 1,2MG/ML [Concomitant]
     Route: 003

REACTIONS (1)
  - Deafness [Not Recovered/Not Resolved]

NARRATIVE: CASE EVENT DATE: 20170208
